FAERS Safety Report 19092588 (Version 1)
Quarter: 2021Q2

REPORT INFORMATION
  Report Type: Spontaneous
  Country: CN (occurrence: CN)
  Receive Date: 20210405
  Receipt Date: 20210405
  Transmission Date: 20210717
  Serious: Yes (Hospitalization, Other)
  Sender: FDA-Public Use
  Company Number: CN-BAXTER-2021BAX006270

PATIENT
  Age: 41 Year
  Sex: Female
  Weight: 53 kg

DRUGS (20)
  1. 0.9% SODIUM CHLORIDE INJECTION [Suspect]
     Active Substance: SODIUM CHLORIDE
     Dosage: RITUXIMAB  100 MG + 0.9% SODIUM CHLORIDE 100 ML
     Route: 041
     Dates: start: 20210225, end: 20210225
  2. PIRARUBICIN HYDROCHLORIDE [Suspect]
     Active Substance: PIRARUBICIN HYDROCHLORIDE
     Indication: DIFFUSE LARGE B-CELL LYMPHOMA STAGE IV
     Dosage: PIRARUBICIN HYDROCHLORIDE + 5% GLUCOSE
     Route: 041
     Dates: start: 20210226, end: 20210226
  3. VINCRISTINE SULFATE. [Suspect]
     Active Substance: VINCRISTINE SULFATE
     Indication: DIFFUSE LARGE B-CELL LYMPHOMA STAGE IV
     Dosage: VINCRISTINE SULFATE 2 MG + 0.9% SODIUM CHLORIDE 100 ML
     Route: 041
     Dates: start: 20210226, end: 20210226
  4. ENDOXAN [Suspect]
     Active Substance: CYCLOPHOSPHAMIDE
     Indication: DIFFUSE LARGE B-CELL LYMPHOMA STAGE IV
     Dosage: CYCLOPHOSPHAMIDE 1.1 G + 0.9% SODIUM CHLORIDE 100 ML
     Route: 041
     Dates: start: 20210226, end: 20210226
  5. HANLIKANG [Suspect]
     Active Substance: RITUXIMAB
     Indication: DIFFUSE LARGE B-CELL LYMPHOMA STAGE IV
     Dosage: RITUXIMAB  100 MG + 0.9% SODIUM CHLORIDE 100ML
     Route: 041
     Dates: start: 20210225, end: 20210225
  6. PIRARUBICIN HYDROCHLORIDE [Suspect]
     Active Substance: PIRARUBICIN HYDROCHLORIDE
     Dosage: PIRARUBICIN HYDROCHLORIDE + 5% GLUCOSE, DOSE REINTRODUCED
     Route: 041
     Dates: start: 202103
  7. HANLIKANG [Suspect]
     Active Substance: RITUXIMAB
     Dosage: RITUXIMAB + 0.9% SODIUM CHLORIDE, DOSE REINTRODUCED
     Route: 041
     Dates: start: 202103
  8. 5% GLUCOSE  INJECTION [Suspect]
     Active Substance: DEXTROSE
     Dosage: PIRARUBICIN HYDROCHLORIDE + 5% GLUCOSE, DOSE REINTRODUCED
     Route: 041
     Dates: start: 202103
  9. ENDOXAN [Suspect]
     Active Substance: CYCLOPHOSPHAMIDE
     Dosage: CYCLOPHOSPHAMIDE + 0.9% SODIUM CHLORIDE, DOSE REINTRODUCED
     Route: 041
     Dates: start: 202103
  10. 0.9% SODIUM CHLORIDE INJECTION [Suspect]
     Active Substance: SODIUM CHLORIDE
     Dosage: VINCRISTINE SULFATE 2 MG + 0.9% SODIUM CHLORIDE 100 ML
     Route: 041
     Dates: start: 20210226, end: 20210226
  11. 0.9% SODIUM CHLORIDE INJECTION [Suspect]
     Active Substance: SODIUM CHLORIDE
     Dosage: CYCLOPHOSPHAMIDE + 0.9% SODIUM CHLORIDE, DOSE REINTRODUCED
     Route: 041
     Dates: start: 202103
  12. 0.9% SODIUM CHLORIDE INJECTION [Suspect]
     Active Substance: SODIUM CHLORIDE
     Dosage: VINCRISTINE SULFATE + 0.9% SODIUM CHLORIDE, DOSE REINTRODUCED
     Route: 041
     Dates: start: 202103
  13. 5% GLUCOSE  INJECTION [Suspect]
     Active Substance: DEXTROSE
     Indication: MEDICATION DILUTION
     Dosage: PIRARUBICIN HYDROCHLORIDE + 5% GLUCOSE
     Route: 041
     Dates: start: 20210226, end: 20210226
  14. VINCRISTINE SULFATE. [Suspect]
     Active Substance: VINCRISTINE SULFATE
     Dosage: VINCRISTINE SULFATE + 0.9% SODIUM CHLORIDE, DOSE REINTRODUCED
     Route: 041
     Dates: start: 202103
  15. HANLIKANG [Suspect]
     Active Substance: RITUXIMAB
     Dosage: RITUXIMAB 500 MG + 0.9% SODIUM CHLORIDE 500ML
     Route: 041
     Dates: start: 20210225, end: 20210225
  16. HANLIKANG [Suspect]
     Active Substance: RITUXIMAB
     Dosage: RITUXIMAB + 0.9% SODIUM CHLORIDE, DOSE REINTRODUCED
     Route: 041
     Dates: start: 202103
  17. 0.9% SODIUM CHLORIDE INJECTION [Suspect]
     Active Substance: SODIUM CHLORIDE
     Dosage: RITUXIMAB  500 MG + 0.9% SODIUM CHLORIDE 500ML
     Route: 041
     Dates: start: 20210225, end: 20210225
  18. 0.9% SODIUM CHLORIDE INJECTION [Suspect]
     Active Substance: SODIUM CHLORIDE
     Dosage: RITUXIMAB + 0.9% SODIUM CHLORIDE, DOSE REINTRODUCED
     Route: 041
     Dates: start: 202103
  19. 0.9% SODIUM CHLORIDE INJECTION [Suspect]
     Active Substance: SODIUM CHLORIDE
     Indication: MEDICATION DILUTION
     Dosage: CYCLOPHOSPHAMIDE 1.1 G + 0.9% SODIUM CHLORIDE 100 ML
     Route: 041
     Dates: start: 20210226, end: 20210226
  20. 0.9% SODIUM CHLORIDE INJECTION [Suspect]
     Active Substance: SODIUM CHLORIDE
     Dosage: RITUXIMAB + 0.9% SODIUM CHLORIDE, DOSE REINTRODUCED
     Route: 041
     Dates: start: 202103

REACTIONS (3)
  - Neutrophil count decreased [Recovered/Resolved]
  - White blood cell count decreased [Recovered/Resolved]
  - Myelosuppression [Recovered/Resolved]

NARRATIVE: CASE EVENT DATE: 20210319
